FAERS Safety Report 8082908-1 (Version None)
Quarter: 2012Q1

REPORT INFORMATION
  Report Type: 
  Country: None (occurrence: None)
  Receive Date: 20120127
  Receipt Date: 20110223
  Transmission Date: 20120608
  Serious: No
  Sender: FDA-Public Use
  Company Number: US-ABBOTT-11P-163-0705153-00

PATIENT
  Age: 45 Year
  Sex: Female

DRUGS (11)
  1. LISINOPRIL [Concomitant]
     Indication: HYPERTENSION
     Dosage: 10 MG. DAILY
  2. NEXIUM [Concomitant]
     Indication: GASTROOESOPHAGEAL REFLUX DISEASE
     Dosage: 40 MG. DAILY
  3. PREDNISONE TAB [Concomitant]
     Indication: RHEUMATOID ARTHRITIS
     Dosage: 5 MG ALTERNATING WITH 2.5MG EVERY OTHER DAY FOR 2 WEEKS
  4. HYDROCODONE BITARTRATE AND ACETAMINOPHEN [Concomitant]
     Indication: PAIN
     Dosage: 10/325 MG EVERY 8 HOURS
  5. HYDROCHLOROTHIAZIDE [Concomitant]
     Indication: HYPERTENSION
     Dosage: 25 MG.DAILY
  6. ETODOLAC [Concomitant]
     Indication: PAIN
     Dosage: 400MG - 2 TIMES A DAY
  7. SERTRALINE HYDROCHLORIDE [Concomitant]
     Indication: DEPRESSION
     Dosage: 50 MG. DAILY
  8. HUMIRA [Suspect]
     Indication: RHEUMATOID ARTHRITIS
     Dates: start: 20101102
  9. PREDNISONE TAB [Concomitant]
     Dosage: 2.5 MG EVERY OTHER DAY FOR 2 WEEKS THEN SHE WILL BE OFF OF PREDNISONE
  10. METHOCARBAMOL [Concomitant]
     Indication: MUSCLE RELAXANT THERAPY
     Dosage: 750 MG- 2 TIMES A DA
  11. LORATADINE [Concomitant]
     Indication: HYPERSENSITIVITY
     Dosage: 10 MG. AS NEEDED

REACTIONS (3)
  - LACERATION [None]
  - INJECTION SITE PAIN [None]
  - ALOPECIA [None]
